FAERS Safety Report 13043662 (Version 1)
Quarter: 2016Q4

REPORT INFORMATION
  Report Type: Spontaneous
  Country: US (occurrence: US)
  Receive Date: 20161220
  Receipt Date: 20161220
  Transmission Date: 20170207
  Serious: Yes (Other)
  Sender: FDA-Public Use
  Company Number: US-SUN PHARMACEUTICAL INDUSTRIES LTD-2016US-129634

PATIENT
  Age: 26 Year
  Sex: Male

DRUGS (1)
  1. BACTRIM [Suspect]
     Active Substance: SULFAMETHOXAZOLE\TRIMETHOPRIM
     Indication: ACNE
     Dosage: 1 DF, DAILY
     Route: 048
     Dates: start: 20161013, end: 20161121

REACTIONS (11)
  - Pruritus [Not Recovered/Not Resolved]
  - Product use issue [Recovered/Resolved]
  - Jaundice [Recovering/Resolving]
  - Asthenia [Not Recovered/Not Resolved]
  - Fatigue [Unknown]
  - Faeces discoloured [Unknown]
  - Hepatic enzyme increased [Recovering/Resolving]
  - Nausea [Not Recovered/Not Resolved]
  - Malaise [Unknown]
  - Insomnia [Unknown]
  - Chromaturia [Recovering/Resolving]

NARRATIVE: CASE EVENT DATE: 20161013
